FAERS Safety Report 8986130 (Version 1)
Quarter: 2012Q4

REPORT INFORMATION
  Report Type: Spontaneous
  Country: GR (occurrence: None)
  Receive Date: 20121018
  Receipt Date: 20121018
  Transmission Date: 20130627
  Serious: Yes (Hospitalization, Other)
  Sender: FDA-Public Use
  Company Number: 219024

PATIENT
  Age: 43 Year
  Sex: Female

DRUGS (5)
  1. INNOHEP (TINZAPARIN SODIUM) [Suspect]
     Indication: THROMBOPHILIA
  2. AMPICILLIN [Suspect]
     Indication: DRUG USE FOR UNKNOWN INDICATION
  3. METRONIDAZOLE (METRONIDAZOLE) [Suspect]
     Indication: DRUG USE FOR UNKNOWN INDICATION
  4. AMINOGLYCOSIDE ANTIBIOTICS [Suspect]
     Indication: DRUG USE FOR UNKNOWN INDICATION
  5. SURGICEL [Suspect]
     Indication: DRUG USE FOR UNKNOWN INDICATION

REACTIONS (11)
  - Thrombocytosis [None]
  - Pyrexia [None]
  - Abdominal pain [None]
  - Diarrhoea [None]
  - White blood cell count increased [None]
  - C-reactive protein increased [None]
  - Proteinuria [None]
  - Procedural site reaction [None]
  - Cyst [None]
  - Post procedural haematoma [None]
  - Post procedural infection [None]
